FAERS Safety Report 10792349 (Version 1)
Quarter: 2015Q1

REPORT INFORMATION
  Report Type: Spontaneous
  Country: IT (occurrence: None)
  Receive Date: 20150211
  Receipt Date: 20150211
  Transmission Date: 20150721
  Serious: Yes (Hospitalization)
  Sender: FDA-Public Use
  Company Number: IT-2015VAL000106

PATIENT
  Age: 73 Year
  Sex: Male
  Weight: 75 kg

DRUGS (3)
  1. CARBAMAZEPINE (CARBAMAZEPINE) UNKNOWN [Suspect]
     Active Substance: CARBAMAZEPINE
     Indication: NEURALGIA
  2. AMITRIPTYLINE (AMITRIPTYLINE) [Suspect]
     Active Substance: AMITRIPTYLINE
     Indication: NEURALGIA
  3. BUPIVICAINE [Suspect]
     Active Substance: BUPIVACAINE
     Indication: LOCAL ANAESTHESIA
     Dosage: 0.4 ML/KG

REACTIONS (6)
  - Loss of consciousness [None]
  - Generalised tonic-clonic seizure [None]
  - Cardiac arrest [None]
  - Drug interaction [None]
  - Blood pressure immeasurable [None]
  - Hypoalbuminaemia [None]
